FAERS Safety Report 8512142-X (Version None)
Quarter: 2012Q3

REPORT INFORMATION
  Report Type: 
  Country: None (occurrence: None)
  Receive Date: 20120716
  Receipt Date: 20120710
  Transmission Date: 20120928
  Serious: Yes (Life-Threatening, Disabling)
  Sender: FDA-Public Use
  Company Number: TR-ASTRAZENECA-2010SE14759

PATIENT
  Age: 41 Year
  Sex: Male
  Weight: 95 kg

DRUGS (5)
  1. MIRTAZAPINE [Concomitant]
     Indication: INSOMNIA
     Route: 048
     Dates: start: 20100304
  2. SEROQUEL [Suspect]
     Indication: INSOMNIA
     Route: 048
     Dates: start: 20100329
  3. DIKLORON [Concomitant]
     Indication: HEADACHE
     Route: 048
     Dates: start: 20100304
  4. LEVOTHYROXINE SODIUM [Concomitant]
     Indication: HYPOTHYROIDISM
     Route: 048
     Dates: start: 20000101
  5. ESLOREX [Concomitant]
     Indication: INSOMNIA
     Route: 048
     Dates: start: 20100304

REACTIONS (9)
  - HEPATIC PAIN [None]
  - DYSPNOEA [None]
  - HYPOAESTHESIA [None]
  - ABDOMINAL PAIN UPPER [None]
  - GASTROINTESTINAL PAIN [None]
  - FLATULENCE [None]
  - BLOOD TRIGLYCERIDES INCREASED [None]
  - ARRHYTHMIA [None]
  - GINGIVAL BLEEDING [None]
